FAERS Safety Report 12181169 (Version 4)
Quarter: 2017Q1

REPORT INFORMATION
  Report Type: Spontaneous
  Country: US (occurrence: US)
  Receive Date: 20160315
  Receipt Date: 20170208
  Transmission Date: 20170428
  Serious: Yes (Death, Hospitalization)
  Sender: FDA-Public Use
  Company Number: US-PFIZER INC-2016155295

PATIENT
  Age: 69 Year
  Sex: Female

DRUGS (2)
  1. AFINITOR [Suspect]
     Active Substance: EVEROLIMUS
     Dosage: UNK
     Dates: start: 20160216
  2. AROMASIN [Suspect]
     Active Substance: EXEMESTANE
     Indication: NEOPLASM MALIGNANT
     Dosage: 25 MG, 2X/DAY
     Dates: start: 20160216

REACTIONS (3)
  - Death [Fatal]
  - Pulmonary oedema [Not Recovered/Not Resolved]
  - Product use issue [Unknown]

NARRATIVE: CASE EVENT DATE: 20160216
